FAERS Safety Report 25186840 (Version 2)
Quarter: 2025Q2

REPORT INFORMATION
  Report Type: Report from Study
  Country: US (occurrence: US)
  Receive Date: 20250411
  Receipt Date: 20250422
  Transmission Date: 20250716
  Serious: Yes (Hospitalization, Other)
  Sender: ABBVIE
  Company Number: US-ABBVIE-6212753

PATIENT
  Age: 77 Year
  Sex: Male

DRUGS (2)
  1. CREON [Suspect]
     Active Substance: PANCRELIPASE AMYLASE\PANCRELIPASE LIPASE\PANCRELIPASE PROTEASE
     Indication: Product used for unknown indication
     Route: 048
     Dates: start: 20200224
  2. CREON [Suspect]
     Active Substance: PANCRELIPASE AMYLASE\PANCRELIPASE LIPASE\PANCRELIPASE PROTEASE
     Indication: Product used for unknown indication
     Route: 048

REACTIONS (22)
  - Prostate cancer [Unknown]
  - Vomiting [Unknown]
  - Weight fluctuation [Unknown]
  - Biliary catheter insertion [Recovered/Resolved with Sequelae]
  - Diarrhoea [Unknown]
  - Feeding disorder [Unknown]
  - Hypovitaminosis [Unknown]
  - White blood cell count decreased [Not Recovered/Not Resolved]
  - Red blood cell count increased [Not Recovered/Not Resolved]
  - Hernia [Recovered/Resolved]
  - Post procedural sepsis [Recovered/Resolved]
  - Shock [Recovered/Resolved]
  - Hepatectomy [Unknown]
  - Blood iron decreased [Unknown]
  - Cholecystectomy [Unknown]
  - Gastrectomy [Unknown]
  - Lymphadenectomy [Unknown]
  - Pancreaticoduodenectomy [Unknown]
  - Nausea [Unknown]
  - White blood cell count increased [Unknown]
  - Red blood cell count decreased [Unknown]
  - Anaemia [Unknown]

NARRATIVE: CASE EVENT DATE: 20200224
